FAERS Safety Report 15580691 (Version 1)
Quarter: 2018Q4

REPORT INFORMATION
  Report Type: Spontaneous
  Country: US (occurrence: US)
  Receive Date: 20181102
  Receipt Date: 20181102
  Transmission Date: 20190205
  Serious: Yes (Disabling)
  Sender: FDA-Public Use
  Company Number: None

PATIENT
  Age: 59 Year
  Sex: Female
  Weight: 96.75 kg

DRUGS (23)
  1. PILOCARPINE. [Concomitant]
     Active Substance: PILOCARPINE
  2. NAC [Concomitant]
  3. MAGNESIUM [Concomitant]
     Active Substance: MAGNESIUM
  4. TORADOL [Concomitant]
     Active Substance: KETOROLAC TROMETHAMINE
  5. DOXEPIN [Concomitant]
     Active Substance: DOXEPIN
  6. LYRICA [Concomitant]
     Active Substance: PREGABALIN
  7. SAM-E [Concomitant]
     Active Substance: ADEMETIONINE
  8. PROBIOTICS [Concomitant]
     Active Substance: PROBIOTICS NOS
  9. DHEA [Concomitant]
     Active Substance: PRASTERONE
  10. FOLIC ACID. [Concomitant]
     Active Substance: FOLIC ACID
  11. VITAMIN D [Concomitant]
     Active Substance: CHOLECALCIFEROL
  12. NORCO [Concomitant]
     Active Substance: ACETAMINOPHEN\HYDROCODONE BITARTRATE
  13. ZOLPIDEM [Concomitant]
     Active Substance: ZOLPIDEM\ZOLPIDEM TARTRATE
  14. VITAMIN B12 [Concomitant]
     Active Substance: CYANOCOBALAMIN
  15. AIMOVIG [Suspect]
     Active Substance: ERENUMAB-AOOE
     Indication: MIGRAINE
     Dosage: ?          QUANTITY:1 INJECTION;OTHER FREQUENCY:ONCE PER MONTH;?
     Route: 058
     Dates: start: 20180910, end: 20181024
  16. MELOXICAM. [Concomitant]
     Active Substance: MELOXICAM
  17. PENNSAID [Concomitant]
     Active Substance: DICLOFENAC SODIUM
  18. METFORMIN [Concomitant]
     Active Substance: METFORMIN HYDROCHLORIDE
  19. MODAFINIL. [Concomitant]
     Active Substance: MODAFINIL
  20. VITAMIN D [Concomitant]
     Active Substance: CHOLECALCIFEROL
  21. TIZANIDINE. [Concomitant]
     Active Substance: TIZANIDINE
  22. KRILL OIL [Concomitant]
     Active Substance: DIETARY SUPPLEMENT
  23. CALCIUM [Concomitant]
     Active Substance: CALCIUM

REACTIONS (4)
  - Arthralgia [None]
  - Myalgia [None]
  - Fatigue [None]
  - Muscle spasms [None]

NARRATIVE: CASE EVENT DATE: 20180911
